FAERS Safety Report 23674906 (Version 1)
Quarter: 2024Q1

REPORT INFORMATION
  Report Type: Report from Study
  Country: FR (occurrence: FR)
  Receive Date: 20240326
  Receipt Date: 20240326
  Transmission Date: 20240410
  Serious: Yes (Other)
  Sender: FDA-Public Use
  Company Number: FR-RECORDATI-2022003323

PATIENT
  Age: 46 Year
  Sex: Male
  Weight: 70 kg

DRUGS (23)
  1. OXYCODONE HYDROCHLORIDE [Suspect]
     Active Substance: OXYCODONE HYDROCHLORIDE
     Indication: Cancer pain
     Dosage: 80 MILLIGRAM, QD
     Route: 048
     Dates: start: 20220607, end: 20220713
  2. METHADONE HYDROCHLORIDE [Suspect]
     Active Substance: METHADONE HYDROCHLORIDE
     Indication: Cancer pain
     Dosage: 70 MILLIGRAM, QD
     Route: 048
     Dates: start: 20220721
  3. METHADONE HYDROCHLORIDE [Suspect]
     Active Substance: METHADONE HYDROCHLORIDE
     Dosage: 40 MILLIGRAM, QD
     Route: 048
     Dates: start: 20220714, end: 20220714
  4. METHADONE HYDROCHLORIDE [Suspect]
     Active Substance: METHADONE HYDROCHLORIDE
     Dosage: 80 MILLIGRAM, QD
     Route: 048
     Dates: start: 20220720, end: 20220720
  5. METHADONE HYDROCHLORIDE [Suspect]
     Active Substance: METHADONE HYDROCHLORIDE
     Dosage: 60 MILLIGRAM, QD
     Route: 048
     Dates: start: 20220713, end: 20220713
  6. METHADONE HYDROCHLORIDE [Suspect]
     Active Substance: METHADONE HYDROCHLORIDE
     Dosage: 60 MILLIGRAM, QD
     Route: 048
     Dates: start: 20220715, end: 20220715
  7. METHADONE HYDROCHLORIDE [Suspect]
     Active Substance: METHADONE HYDROCHLORIDE
     Dosage: 90 MILLIGRAM, QD
     Route: 048
     Dates: start: 20220717, end: 20220718
  8. METHADONE HYDROCHLORIDE [Suspect]
     Active Substance: METHADONE HYDROCHLORIDE
     Dosage: 100 MILLIGRAM, QD
     Route: 048
     Dates: start: 20220719, end: 20220719
  9. METHADONE HYDROCHLORIDE [Suspect]
     Active Substance: METHADONE HYDROCHLORIDE
     Dosage: 85 MILLIGRAM, QD
     Route: 048
     Dates: start: 20220716, end: 20220716
  10. METHADONE HYDROCHLORIDE [Suspect]
     Active Substance: METHADONE HYDROCHLORIDE
     Dosage: 35 MG METHADONE X 2
     Route: 065
     Dates: start: 20220810
  11. ACETAMINOPHEN [Concomitant]
     Active Substance: ACETAMINOPHEN
     Indication: Cancer pain
     Dosage: UNK
     Route: 065
     Dates: start: 20220713
  12. MORPHINE SULFATE [Concomitant]
     Active Substance: MORPHINE SULFATE
     Indication: Cancer pain
     Dosage: 30 MG IF NEEDED 4 TO 6 A DAY
     Route: 065
     Dates: start: 20220713
  13. SKENAN [Concomitant]
     Active Substance: MORPHINE SULFATE
     Indication: Cancer pain
     Dosage: 60 MILLIGRAM, BID (MORNING/EVENING)
     Route: 065
     Dates: start: 20220713
  14. AMITRIPTYLINE HYDROCHLORIDE [Concomitant]
     Active Substance: AMITRIPTYLINE HYDROCHLORIDE
     Indication: Cancer pain
     Dosage: UNK
     Route: 065
     Dates: start: 20220721
  15. AMITRIPTYLINE HYDROCHLORIDE [Concomitant]
     Active Substance: AMITRIPTYLINE HYDROCHLORIDE
     Dosage: 3 X 10 DROPS PER DAY
     Route: 065
     Dates: start: 20220713
  16. AMITRIPTYLINE HYDROCHLORIDE [Concomitant]
     Active Substance: AMITRIPTYLINE HYDROCHLORIDE
     Dosage: 50MG EVENING
     Route: 065
     Dates: start: 20220713
  17. GABAPENTIN [Concomitant]
     Active Substance: GABAPENTIN
     Indication: Cancer pain
     Dosage: 1100 MG MORNING, NOON AND EVENING
     Route: 065
     Dates: start: 20220713
  18. GABAPENTIN [Concomitant]
     Active Substance: GABAPENTIN
     Dosage: 1100 X3
     Route: 065
     Dates: start: 20220810
  19. GABAPENTIN [Concomitant]
     Active Substance: GABAPENTIN
     Dosage: UNK
     Route: 065
     Dates: start: 20220721
  20. KETOPROFEN [Concomitant]
     Active Substance: KETOPROFEN
     Indication: Cancer pain
     Dosage: UNK
     Route: 065
     Dates: start: 20220810
  21. KETOPROFEN [Concomitant]
     Active Substance: KETOPROFEN
     Dosage: UNK
     Route: 065
     Dates: start: 20220721
  22. KETOPROFEN [Concomitant]
     Active Substance: KETOPROFEN
     Dosage: 100 MILLIGRAM, BID (MORNING AND EVENING)
     Route: 065
     Dates: start: 20220713
  23. DOLIPRANE [Concomitant]
     Active Substance: ACETAMINOPHEN
     Indication: Cancer pain
     Dosage: UNK
     Route: 065
     Dates: start: 20220721

REACTIONS (8)
  - Hypoxia [Unknown]
  - Hallucination [Unknown]
  - Somnolence [Recovered/Resolved]
  - Urinary incontinence [Recovered/Resolved]
  - Dry mouth [Recovered/Resolved]
  - Constipation [Recovered/Resolved]
  - Myoclonus [Unknown]
  - Confusional state [Unknown]

NARRATIVE: CASE EVENT DATE: 20220713
